FAERS Safety Report 8772654 (Version 2)
Quarter: 2012Q4

REPORT INFORMATION
  Report Type: 
  Country: US (occurrence: US)
  Receive Date: 20120905
  Receipt Date: 20121009
  Transmission Date: 20130627
  Serious: Yes (Hospitalization, Other)
  Sender: FDA-Public Use
  Company Number: US-AMGEN-USASP2012055420

PATIENT
  Age: 58 Year
  Sex: Female

DRUGS (2)
  1. ENBREL [Suspect]
     Indication: PSORIATIC ARTHROPATHY
     Dosage: UNK
     Route: 058
     Dates: start: 20030103, end: 20101012
  2. METHOTREXATE [Concomitant]
     Dosage: UNK
     Dates: start: 20120415

REACTIONS (7)
  - Hip arthroplasty [Recovered/Resolved]
  - Retinal detachment [Recovered/Resolved]
  - Lymphoma [Recovered/Resolved]
  - Therapeutic response decreased [Not Recovered/Not Resolved]
  - Asthenia [Not Recovered/Not Resolved]
  - Neoplasm [Recovered/Resolved]
  - Meniscus injury [Recovered/Resolved]
